FAERS Safety Report 6022763-4 (Version None)
Quarter: 2008Q4

REPORT INFORMATION
  Report Type: 
  Country: None (occurrence: None)
  Receive Date: 20081230
  Receipt Date: 20081223
  Transmission Date: 20090506
  Serious: Yes (Other)
  Sender: FDA-Public Use
  Company Number: US-BAYER-200839319NA

PATIENT
  Sex: Female

DRUGS (2)
  1. AVELOX [Suspect]
     Indication: UNEVALUABLE EVENT
  2. METHADON HCL TAB [Concomitant]

REACTIONS (1)
  - TORSADE DE POINTES [None]
